FAERS Safety Report 5015012-7 (Version None)
Quarter: 2006Q2

REPORT INFORMATION
  Report Type: 
  Country: None (occurrence: None)
  Receive Date: 20060530
  Receipt Date: 20060519
  Transmission Date: 20061013
  Serious: Yes (Death)
  Sender: FDA-Public Use
  Company Number: US017508

PATIENT
  Age: 18 Month
  Sex: Male

DRUGS (1)
  1. ACTIQ [Suspect]
     Dosage: 1200 UG ONCE BUCCAL
     Route: 002
     Dates: start: 20060420, end: 20060420

REACTIONS (2)
  - ACCIDENTAL DRUG INTAKE BY CHILD [None]
  - FOAMING AT MOUTH [None]
